FAERS Safety Report 7979037-1 (Version None)
Quarter: 2011Q4

REPORT INFORMATION
  Report Type: 
  Country: None (occurrence: None)
  Receive Date: 20111214
  Receipt Date: 20111209
  Transmission Date: 20120403
  Serious: No
  Sender: FDA-Public Use
  Company Number: US-PFIZER INC-2011300645

PATIENT
  Sex: Female

DRUGS (2)
  1. PREDNISONE [Concomitant]
     Indication: CONNECTIVE TISSUE DISORDER
     Dosage: 20 MG, UNK
  2. AVINZA [Suspect]
     Dosage: 30 MG, EVERY DAY
     Dates: start: 20111115, end: 20111122

REACTIONS (5)
  - PIGMENTATION DISORDER [None]
  - RASH [None]
  - PRURITUS GENERALISED [None]
  - EYELID OEDEMA [None]
  - WITHDRAWAL SYNDROME [None]
